FAERS Safety Report 21092967 (Version 1)
Quarter: 2022Q3

REPORT INFORMATION
  Report Type: Spontaneous
  Country: CN (occurrence: CN)
  Receive Date: 20220718
  Receipt Date: 20220718
  Transmission Date: 20221027
  Serious: Yes (Other)
  Sender: FDA-Public Use
  Company Number: None

PATIENT
  Age: 52 Year
  Sex: Female
  Weight: 74 kg

DRUGS (8)
  1. CYCLOPHOSPHAMIDE [Suspect]
     Active Substance: CYCLOPHOSPHAMIDE
     Indication: Breast cancer female
     Dosage: QD, 1-4 CYCLES OF CHEMOTHERAPY (CYCLOPHOSPHAMIDE DILUTED WITH SODIUM CHLORIDE)
     Route: 042
  2. CYCLOPHOSPHAMIDE [Suspect]
     Active Substance: CYCLOPHOSPHAMIDE
     Dosage: 1070 MG, QD, 5TH CHEMOTHERAPY, ROUTE-INTRAVENOUS INJECTION, CYCLOPHOSPHAMIDE (1070 MG) DILUTED WITH
     Route: 042
     Dates: start: 20220412, end: 20220412
  3. SODIUM CHLORIDE [Suspect]
     Active Substance: SODIUM CHLORIDE
     Indication: Medication dilution
     Dosage: QD, 1-4 CYCLES OF CHEMOTHERAPY (CYCLOPHOSPHAMIDE DILUTED WITH SODIUM CHLORIDE)
     Route: 042
  4. SODIUM CHLORIDE [Suspect]
     Active Substance: SODIUM CHLORIDE
     Dosage: 55 ML, QD, 5TH CHEMOTHERAPY, ROUTE-INTRAVENOUS INJECTION, CYCLOPHOSPHAMIDE (1070 MG) DILUTED WITH SO
     Route: 042
     Dates: start: 20220412, end: 20220412
  5. SODIUM CHLORIDE [Suspect]
     Active Substance: SODIUM CHLORIDE
     Dosage: QD, 1-4 CYCLES OF CHEMOTHERAPY (DOCETAXEL INJECTION DILUTED WITH SODIUM CHLORIDE)
     Route: 041
  6. SODIUM CHLORIDE [Suspect]
     Active Substance: SODIUM CHLORIDE
     Dosage: 250 ML, QD, 5TH CHEMOTHERAPY, DOCETAXEL INJECTION (134 MG) DILUTED WITH SODIUM CHLORIDE(250ML)
     Route: 041
     Dates: start: 20220412, end: 20220412
  7. DOCETAXEL [Suspect]
     Active Substance: DOCETAXEL
     Indication: Breast cancer female
     Dosage: QD, 1-4 CYCLES OF CHEMOTHERAPY (DOCETAXEL INJECTION DILUTED WITH SODIUM CHLORIDE)
     Route: 041
  8. DOCETAXEL [Suspect]
     Active Substance: DOCETAXEL
     Dosage: 5TH CHEMOTHERAPY, DOCETAXEL INJECTION (134 MG) DILUTED WITH SODIUM CHLORIDE(250ML)
     Route: 041
     Dates: start: 20220412, end: 20220412

REACTIONS (2)
  - White blood cell count decreased [Recovered/Resolved]
  - Agranulocytosis [Recovered/Resolved]

NARRATIVE: CASE EVENT DATE: 20220420
